FAERS Safety Report 14968786 (Version 1)
Quarter: 2018Q2

REPORT INFORMATION
  Report Type: Spontaneous
  Country: US (occurrence: US)
  Receive Date: 20180604
  Receipt Date: 20180604
  Transmission Date: 20180711
  Serious: Yes (Other)
  Sender: FDA-Public Use
  Company Number: US-PFIZER INC-2018220576

PATIENT
  Sex: Female

DRUGS (11)
  1. MEPIVACAINE HCL [Suspect]
     Active Substance: MEPIVACAINE\MEPIVACAINE HYDROCHLORIDE
     Dosage: 20 ML, UNK
  2. LIDOCAINE HCL [Suspect]
     Active Substance: LIDOCAINE HYDROCHLORIDE
     Indication: ANALGESIC THERAPY
     Dosage: 225 MG, UNK (1.1 ML OF LIDOCAINE IN 1.5 %)
  3. MADRIBON [Concomitant]
     Active Substance: SULFADIMETHOXINE
     Indication: PYELONEPHRITIS
  4. DEMEROL [Concomitant]
     Active Substance: MEPERIDINE HYDROCHLORIDE
     Dosage: 200 MG, UNK
  5. MADRIBON [Concomitant]
     Active Substance: SULFADIMETHOXINE
     Indication: KLEBSIELLA INFECTION
     Dosage: UNK
  6. PROPITOCAINE HCL [Suspect]
     Active Substance: PRILOCAINE HYDROCHLORIDE
     Indication: ANALGESIC THERAPY
     Dosage: 1200 MG, UNK (INJECTION OF 20 ML IN A 2 + CONCENTRATION)
  7. SPARTEINE SULFATE [Concomitant]
     Active Substance: SPARTEINE SULFATE
     Dosage: UNK (INTRAMUSCULARLY AT 4 AND 4:30 P.M. IN A TOTAL DOSE OF 150 MG)
     Route: 030
  8. MEPIVACAINE HCL [Suspect]
     Active Substance: MEPIVACAINE\MEPIVACAINE HYDROCHLORIDE
     Indication: EPIDURAL ANALGESIA
     Dosage: UNK, 920 MG
  9. PHENERGAN [Concomitant]
     Active Substance: PROMETHAZINE HYDROCHLORIDE
     Dosage: 50 MG, UNK
     Route: 030
  10. PHENOBARBITAL. [Concomitant]
     Active Substance: PHENOBARBITAL
     Dosage: 100 MG, UNK
  11. SCOPOLAMINE HYDROBROMIDE. [Concomitant]
     Active Substance: SCOPOLAMINE HYDROBROMIDE
     Dosage: 1 MG, UNK
     Route: 030

REACTIONS (5)
  - Tachyphylaxis [None]
  - Drug ineffective [Unknown]
  - Methaemoglobinaemia [Recovered/Resolved]
  - Cyanosis [None]
  - Maternal exposure during delivery [None]
